FAERS Safety Report 7374633 (Version 3)
Quarter: 2017Q2

REPORT INFORMATION
  Report Type: Spontaneous
  Country: US (occurrence: US)
  Receive Date: 20100503
  Receipt Date: 20170628
  Transmission Date: 20170830
  Serious: Yes (Other)
  Sender: FDA-Public Use
  Company Number: US-ASTRAZENECA-2009SE20229

PATIENT
  Age: 551 Month
  Sex: Female

DRUGS (6)
  1. NEXIUM [Suspect]
     Active Substance: ESOMEPRAZOLE MAGNESIUM
     Indication: GASTROOESOPHAGEAL REFLUX DISEASE
     Route: 048
     Dates: end: 2015
  2. NEXIUM [Suspect]
     Active Substance: ESOMEPRAZOLE MAGNESIUM
     Indication: GASTROOESOPHAGEAL REFLUX DISEASE
     Route: 048
     Dates: end: 2015
  3. CYMBALTA [Concomitant]
     Active Substance: DULOXETINE HYDROCHLORIDE
  4. ENTOCORT EC [Concomitant]
     Active Substance: BUDESONIDE
     Route: 048
  5. SYNTHROID [Concomitant]
     Active Substance: LEVOTHYROXINE SODIUM
  6. TRICOR [Concomitant]
     Active Substance: FENOFIBRATE

REACTIONS (6)
  - Crohn^s disease [Recovered/Resolved]
  - Therapy cessation [Unknown]
  - Throat irritation [Recovered/Resolved]
  - Product use issue [Unknown]
  - Neoplasm malignant [Unknown]
  - Breast cancer female [Unknown]

NARRATIVE: CASE EVENT DATE: 200905
